FAERS Safety Report 20659465 (Version 2)
Quarter: 2022Q3

REPORT INFORMATION
  Report Type: Report from Study
  Country: US (occurrence: US)
  Receive Date: 20220331
  Receipt Date: 20220920
  Transmission Date: 20221026
  Serious: Yes (Hospitalization)
  Sender: FDA-Public Use
  Company Number: US-PHARMACOVIGILANCE-US-KAD-22-00355

PATIENT
  Sex: Male

DRUGS (3)
  1. REZUROCK [Suspect]
     Active Substance: BELUMOSUDIL
     Indication: Product used for unknown indication
     Dosage: 200 MILLIGRAM, QD; WITH FOOD AND WASTER
     Route: 048
     Dates: start: 20210304
  2. REZUROCK [Suspect]
     Active Substance: BELUMOSUDIL
     Dosage: 200 MILLIGRAM, QD;  WITH FOOD AND WASTER
     Route: 065
     Dates: start: 20210403
  3. VALACYCLOVIR [Concomitant]
     Active Substance: VALACYCLOVIR HYDROCHLORIDE
     Indication: Prophylaxis

REACTIONS (4)
  - Ascites [Unknown]
  - Blood bilirubin increased [Recovering/Resolving]
  - Hepatic enzyme abnormal [Recovering/Resolving]
  - Cough [Unknown]
